FAERS Safety Report 7758605-6 (Version None)
Quarter: 2011Q3

REPORT INFORMATION
  Report Type: 
  Country: None (occurrence: None)
  Receive Date: 20110919
  Receipt Date: 20110915
  Transmission Date: 20111222
  Serious: Yes (Other)
  Sender: FDA-Public Use
  Company Number: US-ABBOTT-11P-163-0855022-00

PATIENT
  Age: 34 Year
  Sex: Female

DRUGS (2)
  1. EPZICOM, EPZ [Suspect]
     Indication: PROPHYLAXIS AGAINST HIV INFECTION
     Route: 048
     Dates: start: 20070305
  2. KALETRA [Suspect]
     Indication: PROPHYLAXIS AGAINST HIV INFECTION
     Route: 048
     Dates: start: 20070305

REACTIONS (1)
  - ABORTION SPONTANEOUS [None]
